FAERS Safety Report 8421735-X (Version None)
Quarter: 2012Q2

REPORT INFORMATION
  Report Type: 
  Country: None (occurrence: None)
  Receive Date: 20120608
  Receipt Date: 20120529
  Transmission Date: 20120825
  Serious: Yes (Hospitalization)
  Sender: FDA-Public Use
  Company Number: BR-BRISTOL-MYERS SQUIBB COMPANY-16651440

PATIENT
  Age: 73 Year
  Sex: Male
  Weight: 72 kg

DRUGS (7)
  1. LOSARTAN [Concomitant]
  2. ONGLYZA [Suspect]
     Indication: DIABETES MELLITUS
     Dosage: RESTARTED MAY12
     Route: 048
  3. CARVEDILOL [Concomitant]
  4. OMEPRAZOLE [Concomitant]
  5. INSULIN [Concomitant]
     Indication: DIABETES MELLITUS
  6. CIPROFIBRATE [Concomitant]
  7. HYDROCHLOROTHIAZDE TAB [Concomitant]

REACTIONS (2)
  - INFARCTION [None]
  - WEIGHT INCREASED [None]
